FAERS Safety Report 22098989 (Version 1)
Quarter: 2023Q1

REPORT INFORMATION
  Report Type: Spontaneous
  Country: US (occurrence: None)
  Receive Date: 20230315
  Receipt Date: 20230315
  Transmission Date: 20230417
  Serious: Yes (Other)
  Sender: FDA-Public Use
  Company Number: None

PATIENT
  Age: 30 Year
  Sex: Female

DRUGS (1)
  1. SLYND [Suspect]
     Active Substance: DROSPIRENONE
     Dates: start: 20230307

REACTIONS (4)
  - Panic attack [None]
  - Self-injurious ideation [None]
  - Violence-related symptom [None]
  - Depression [None]

NARRATIVE: CASE EVENT DATE: 20230314
